FAERS Safety Report 8476351 (Version 6)
Quarter: 2016Q1

REPORT INFORMATION
  Report Type: Spontaneous
  Country: US (occurrence: US)
  Receive Date: 20120326
  Receipt Date: 20160302
  Transmission Date: 20160526
  Serious: Yes (Other)
  Sender: FDA-Public Use
  Company Number: US-PFIZER INC-2012072120

PATIENT
  Age: 45 Year
  Sex: Female

DRUGS (35)
  1. LYRICA [Suspect]
     Active Substance: PREGABALIN
     Dosage: 150 MG, 3X/DAY (75 MG 2 TABS TID)
     Route: 048
  2. ZOLPIDEM [Concomitant]
     Active Substance: ZOLPIDEM\ZOLPIDEM TARTRATE
     Dosage: 12.5 MG Q HS
  3. PRANDIN [Concomitant]
     Active Substance: REPAGLINIDE
     Dosage: 0.5 MG, 3X/DAY
  4. VITAMIN D3 [Concomitant]
     Active Substance: CHOLECALCIFEROL
     Dosage: UNK, 2000 IU DAILY
  5. LEVOXYL [Concomitant]
     Active Substance: LEVOTHYROXINE SODIUM
     Dosage: 112MCG DAILY
  6. SIMVASTATIN. [Concomitant]
     Active Substance: SIMVASTATIN
     Dosage: 40MG DAILY
  7. LORATADINE. [Concomitant]
     Active Substance: LORATADINE
     Indication: HYPERSENSITIVITY
     Dosage: 10 MG, AS NEEDED
  8. BACTRUM DS [Concomitant]
     Dosage: 1 DF, 2X/DAY
  9. ARMOUR THYROID [Concomitant]
     Active Substance: THYROID, PORCINE
     Dosage: 90 MG, UNK
  10. LIDODERM [Concomitant]
     Active Substance: LIDOCAINE
     Indication: FIBROMYALGIA
     Dosage: UNK, AS NEEDED (PRN)
  11. ASACOL HD [Concomitant]
     Active Substance: MESALAMINE
     Dosage: 800MG 1-2 TABS DAILY
  12. XANAX [Concomitant]
     Active Substance: ALPRAZOLAM
     Dosage: 0.25 MG, AS NEEDED
  13. FIORICET [Concomitant]
     Active Substance: ACETAMINOPHEN\BUTALBITAL\CAFFEINE
     Indication: MIGRAINE
     Dosage: UNK, AS NEEDED, (PRN)
  14. LISINOPRIL. [Concomitant]
     Active Substance: LISINOPRIL
     Dosage: 10/12.5 MG DAILY
  15. OSCAL [Concomitant]
     Active Substance: CALCIUM CARBONATE
     Dosage: 1 DF, 2X/DAY
  16. LISINOPRIL AND HYDROCHLOROTHIAZIDE [Concomitant]
     Active Substance: HYDROCHLOROTHIAZIDE\LISINOPRIL
     Dosage: UNK, 10/12.5 MG DAILY
  17. BIOTIN [Concomitant]
     Active Substance: BIOTIN
     Dosage: 500 MG, UNK
  18. FISH OIL [Concomitant]
     Active Substance: FISH OIL
     Dosage: 1000MG DAILY
  19. TIZANIDINE HYDROCHLORIDE. [Concomitant]
     Active Substance: TIZANIDINE HYDROCHLORIDE
     Dosage: 4 MG, 1X/DAY, (2 MG 2 CAPS Q HS)
  20. CALCIUM/VITAMIN D [Concomitant]
     Active Substance: CALCIUM\VITAMIN D
     Dosage: UNK
  21. BLACK COHOSH [Concomitant]
     Active Substance: BLACK COHOSH
     Dosage: 540MG DAILY
  22. TREXIMET [Concomitant]
     Active Substance: NAPROXEN SODIUM\SUMATRIPTAN SUCCINATE
     Indication: MIGRAINE
     Dosage: UNK, AS NEEDED, (PRN)
  23. DILAUDID [Concomitant]
     Active Substance: HYDROMORPHONE HYDROCHLORIDE
     Dosage: UNK, AS NEEDED
  24. LYRICA [Suspect]
     Active Substance: PREGABALIN
     Indication: FIBROMYALGIA
     Dosage: 150 MG, 2X/DAY
     Route: 048
  25. DEXILANT [Concomitant]
     Active Substance: DEXLANSOPRAZOLE
     Dosage: 60MG DAILY
  26. EFFEXOR XR [Concomitant]
     Active Substance: VENLAFAXINE HYDROCHLORIDE
     Dosage: 37.5 MG, 3X/DAY
  27. COUMADIN [Concomitant]
     Active Substance: WARFARIN SODIUM
     Dosage: 10MG DAILY
  28. MAGNESIUM [Concomitant]
     Active Substance: MAGNESIUM
     Dosage: 250 MG, 2X/DAY
  29. CRESTOR [Concomitant]
     Active Substance: ROSUVASTATIN CALCIUM
     Dosage: 10 MG, UNK
  30. METFORMIN [Concomitant]
     Active Substance: METFORMIN HYDROCHLORIDE
     Dosage: 500 MG, AS NEEDED
  31. ZOFRAN [Concomitant]
     Active Substance: ONDANSETRON HYDROCHLORIDE
     Indication: NAUSEA
     Dosage: 4 MG, AS NEEDED
  32. FLORASTOR [Concomitant]
     Active Substance: SACCHAROMYCES CEREVISIAE
  33. VITAMIN B2 [Concomitant]
     Active Substance: RIBOFLAVIN
     Dosage: 200 MG, 2X/DAY
  34. DILAUDID [Concomitant]
     Active Substance: HYDROMORPHONE HYDROCHLORIDE
     Dosage: UNK, (2 MG--1-2 CAPS Q 6 PRN)
  35. VITAMIN C [Concomitant]
     Active Substance: ASCORBIC ACID
     Dosage: 1000 MG, UNK

REACTIONS (2)
  - Drug ineffective [Unknown]
  - Liver injury [Unknown]
